FAERS Safety Report 7753345-1 (Version None)
Quarter: 2011Q3

REPORT INFORMATION
  Report Type: 
  Country: None (occurrence: None)
  Receive Date: 20110915
  Receipt Date: 20110906
  Transmission Date: 20111222
  Serious: Yes (Other)
  Sender: FDA-Public Use
  Company Number: AU-ASTRAZENECA-2011SE48392

PATIENT
  Age: 7 Year
  Sex: Male

DRUGS (2)
  1. PROPOFOL [Suspect]
     Route: 042
  2. SUXAMETHONIUM [Suspect]
     Dosage: 100MG/2ML

REACTIONS (1)
  - RASH MACULAR [None]
